FAERS Safety Report 8126407-7 (Version None)
Quarter: 2012Q1

REPORT INFORMATION
  Report Type: 
  Country: None (occurrence: None)
  Receive Date: 20120209
  Receipt Date: 20120131
  Transmission Date: 20120608
  Serious: Yes (Hospitalization)
  Sender: FDA-Public Use
  Company Number: FR-ASTRAZENECA-2012SE06982

PATIENT
  Age: 22083 Day
  Sex: Female

DRUGS (11)
  1. ATORVASTATIN [Concomitant]
     Indication: HYPOLIPIDAEMIA
     Route: 048
     Dates: start: 20111207
  2. TERCIAN [Concomitant]
     Dosage: DAILY
     Route: 048
     Dates: start: 20111215
  3. LEVOTHYROXINE SODIUM [Concomitant]
     Indication: HYPOTHYROIDISM
     Route: 048
     Dates: start: 20111203
  4. QUETIAPINE FUMARATE [Suspect]
     Indication: BIPOLAR DISORDER
     Route: 048
     Dates: start: 20111215, end: 20111218
  5. OXAZEPAM [Concomitant]
     Indication: ANXIETY
     Route: 048
  6. OXYBUTYNIN [Concomitant]
     Indication: URINARY INCONTINENCE
     Route: 048
     Dates: start: 20111203
  7. DEPAKOTE [Concomitant]
     Indication: AFFECTIVE DISORDER
     Route: 048
  8. GLUCOPHAGE [Concomitant]
     Indication: TYPE 2 DIABETES MELLITUS
     Route: 048
  9. OXAZEPAM [Concomitant]
     Indication: AFFECTIVE DISORDER
     Route: 048
  10. VITAMIN B1 B6 [Concomitant]
     Indication: ASTHENIA
     Route: 048
  11. IMOVANE [Concomitant]
     Indication: INSOMNIA
     Route: 048
     Dates: start: 20111204

REACTIONS (4)
  - SPEECH DISORDER [None]
  - GASTROINTESTINAL DISORDER [None]
  - DYSPHAGIA [None]
  - CONFUSIONAL STATE [None]
